FAERS Safety Report 7083977-8 (Version None)
Quarter: 2010Q4

REPORT INFORMATION
  Report Type: 
  Country: None (occurrence: None)
  Receive Date: 20101104
  Receipt Date: 20100611
  Transmission Date: 20110411
  Serious: No
  Sender: FDA-Public Use
  Company Number: US-ABBOTT-10P-163-0652550-00

PATIENT
  Sex: Male
  Weight: 103.97 kg

DRUGS (24)
  1. KALETRA [Suspect]
     Indication: HIV INFECTION
     Dosage: 200/50 MG
  2. CYMBALTA [Concomitant]
     Indication: DEPRESSION
  3. BUPROPION [Concomitant]
     Indication: DEPRESSION
  4. DEPAKOTE ER [Concomitant]
     Indication: AGITATION
  5. XANAX [Concomitant]
     Indication: ANXIETY
  6. GABAPENTIN [Concomitant]
     Indication: NEUROPATHY PERIPHERAL
  7. HYDROCODONE [Concomitant]
     Indication: PAIN
  8. ISOSORBIDE DINITRATE [Concomitant]
     Indication: ANGINA PECTORIS
  9. LISINOPRIL [Concomitant]
     Indication: HYPERTENSION
  10. PRAVASTATIN [Concomitant]
     Indication: BLOOD CHOLESTEROL INCREASED
  11. TRICOR [Concomitant]
     Indication: BLOOD TRIGLYCERIDES INCREASED
  12. HYDROCHLOROTHIAZIDE [Concomitant]
     Indication: OEDEMA PERIPHERAL
  13. HYDROCHLOROTHIAZIDE [Concomitant]
  14. LOVAZA [Concomitant]
     Indication: CARDIOVASCULAR EVENT PROPHYLAXIS
  15. BACTRIM DS [Concomitant]
     Indication: PROPHYLAXIS
  16. BACTRIM DS [Concomitant]
     Indication: PNEUMONIA
  17. ACYCLOVIR SODIUM [Concomitant]
     Indication: HERPES VIRUS INFECTION
  18. VITAMIN B-12 [Concomitant]
     Indication: VITAMIN B12 DEFICIENCY
  19. FOLIC ACID [Concomitant]
     Indication: RED BLOOD CELL ABNORMALITY
  20. ZANTAC [Concomitant]
     Indication: GASTROOESOPHAGEAL REFLUX DISEASE
  21. ZANTAC [Concomitant]
     Indication: DYSPEPSIA
  22. PHENERGAN [Concomitant]
     Indication: NAUSEA
  23. ASPIRIN [Concomitant]
     Indication: CORONARY ARTERY DISEASE
  24. IBUPROFEN [Concomitant]
     Indication: PRODUCT USED FOR UNKNOWN INDICATION

REACTIONS (6)
  - COLONIC POLYP [None]
  - DIARRHOEA [None]
  - MEDICATION RESIDUE [None]
  - T-LYMPHOCYTE COUNT DECREASED [None]
  - VIRAL LOAD INCREASED [None]
  - VOMITING [None]
